FAERS Safety Report 9252718 (Version 1)
Quarter: 2013Q1

REPORT INFORMATION
  Report Type: Spontaneous
  Country: US (occurrence: None)
  Receive Date: 20130305
  Receipt Date: 20130305
  Transmission Date: 20140127
  Serious: Yes (Other)
  Sender: FDA-Public Use
  Company Number: 163-21880-12091313

PATIENT
  Age: 62 Year
  Sex: Male

DRUGS (8)
  1. REVLIMID (LENALIDOMIDE) (CAPSULES) [Suspect]
     Indication: PLASMA CELL MYELOMA
     Dosage: 25 MG, 21 IN 28 D, PO
     Dates: start: 20070701
  2. AZOPT (BRINZOLAMIDE) [Concomitant]
  3. TOPROL (METOPROLOL SUCCINATE) [Concomitant]
  4. PREVACID (LANSOPRAZOLE) [Concomitant]
  5. ASA (ACETYLSALICYLIC ACID) [Concomitant]
  6. VITAMINS [Concomitant]
  7. LUMIGAN (BIMATOPROST) [Concomitant]
  8. COMBIGAN (COMBIGAN) [Concomitant]

REACTIONS (1)
  - Platelet count decreased [None]
